FAERS Safety Report 7982393-1 (Version None)
Quarter: 2011Q4

REPORT INFORMATION
  Report Type: 
  Country: None (occurrence: None)
  Receive Date: 20111215
  Receipt Date: 20111206
  Transmission Date: 20120403
  Serious: Yes (Other)
  Sender: FDA-Public Use
  Company Number: CA-ROCHE-1019887

PATIENT
  Sex: Female
  Weight: 72.64 kg

DRUGS (10)
  1. DEPO-MEDROL [Concomitant]
  2. GLICLAZIDE [Concomitant]
  3. MABTHERA [Suspect]
     Indication: RHEUMATOID ARTHRITIS
     Route: 042
     Dates: start: 20090209, end: 20101213
  4. VITAMIN B-12 [Concomitant]
  5. RABEPRAZOLE SODIUM [Concomitant]
  6. ATORVASTATIN [Concomitant]
  7. LORAZEPAM [Concomitant]
  8. METFORMIN HCL [Concomitant]
  9. ZOPLICONE (UNK INGREDIENTS) [Concomitant]
  10. SOTALOL HCL [Concomitant]

REACTIONS (4)
  - ARRHYTHMIA [None]
  - DRUG INEFFECTIVE [None]
  - LOWER RESPIRATORY TRACT INFECTION [None]
  - DIABETIC COMPLICATION [None]
